FAERS Safety Report 18257845 (Version 3)
Quarter: 2020Q3

REPORT INFORMATION
  Report Type: Spontaneous
  Country: US (occurrence: US)
  Receive Date: 20200911
  Receipt Date: 20200914
  Transmission Date: 20201103
  Serious: No
  Sender: FDA-Public Use
  Company Number: US-PFIZER INC-2020349014

PATIENT
  Age: 58 Year
  Sex: Female
  Weight: 81.65 kg

DRUGS (2)
  1. OXYCODONE [Concomitant]
     Active Substance: OXYCODONE
     Dosage: UNK
  2. ALPRAZOLAM. [Suspect]
     Active Substance: ALPRAZOLAM
     Dosage: UNK, (SHE HAD TWO PILLS A DAY AND ONLY TOOK 1.5 PILLS TO 2 PILLS)
     Dates: start: 20200905

REACTIONS (5)
  - Joint swelling [Unknown]
  - Post-traumatic stress disorder [Unknown]
  - Intentional product use issue [Unknown]
  - Insomnia [Unknown]
  - Drug ineffective [Unknown]
